FAERS Safety Report 6336255-6 (Version None)
Quarter: 2009Q3

REPORT INFORMATION
  Report Type: 
  Country: None (occurrence: None)
  Receive Date: 20090901
  Receipt Date: 20090820
  Transmission Date: 20100115
  Serious: Yes (Death)
  Sender: FDA-Public Use
  Company Number: IT-PFIZER INC-2009236241

PATIENT
  Age: 67 Year

DRUGS (10)
  1. ZYVOXID [Suspect]
     Indication: SEPSIS
     Dosage: 1200 MG, 1X/DAY
     Route: 042
     Dates: start: 20090521, end: 20090524
  2. PYRIDOXINE [Concomitant]
     Dosage: 300 MG, UNK
     Route: 048
     Dates: start: 20090505, end: 20090524
  3. GALENIC /RIFAMPICIN/ISONIAZID/PYRAZINAMIDE/ [Concomitant]
     Dosage: UNK
     Route: 048
     Dates: start: 20090507, end: 20090524
  4. MERREM [Concomitant]
     Dosage: 6 G, UNK
     Route: 042
     Dates: start: 20090524, end: 20090524
  5. TARGOCID [Concomitant]
     Dosage: 800 MG, UNK
     Route: 042
     Dates: start: 20090522, end: 20090524
  6. REMERON [Concomitant]
     Dosage: 30 MG, UNK
     Route: 048
     Dates: start: 20090518, end: 20090524
  7. CITALOPRAM [Concomitant]
     Dosage: 10 MG, UNK
     Route: 042
     Dates: start: 20090518, end: 20090524
  8. RANITIDINE HYDROCHLORIDE [Concomitant]
     Dosage: 250 MG, UNK
     Route: 042
     Dates: start: 20090501, end: 20090524
  9. SOLDESAM [Concomitant]
     Dosage: 4 MG, UNK
     Route: 042
     Dates: start: 20090518, end: 20090524
  10. POTASSIUM CANRENOATE [Concomitant]
     Dosage: UNK
     Route: 045
     Dates: start: 20090518, end: 20090524

REACTIONS (1)
  - PLATELET COUNT DECREASED [None]
